FAERS Safety Report 21206156 (Version 1)
Quarter: 2022Q3

REPORT INFORMATION
  Report Type: Report from Study
  Country: DE (occurrence: DE)
  Receive Date: 20220812
  Receipt Date: 20220812
  Transmission Date: 20221027
  Serious: Yes (Hospitalization, Other)
  Sender: FDA-Public Use
  Company Number: DE-CELLTRION INC.-2022DE012787

PATIENT

DRUGS (26)
  1. INFLIXIMAB-DYYB [Suspect]
     Active Substance: INFLIXIMAB-DYYB
     Indication: Axial spondyloarthritis
     Dosage: 120 MG EVERY TWO WEEKS
     Route: 058
     Dates: start: 20210820, end: 20210902
  2. METHOTREXATE SODIUM [Concomitant]
     Active Substance: METHOTREXATE SODIUM
     Dosage: 5 MG, 1/WEEK (NOT DURING ONSET OF SAE)
     Route: 048
     Dates: start: 20200911, end: 20210707
  3. ETORICOXIB [Concomitant]
     Active Substance: ETORICOXIB
     Dosage: 90 MG, 1/WEEK
     Dates: start: 20210505, end: 20211013
  4. HYDROMORPHONE [Concomitant]
     Active Substance: HYDROMORPHONE
     Dosage: 3.9 B.BD MG
  5. NALOXEGOL [Concomitant]
     Active Substance: NALOXEGOL
     Dosage: 25 MG
  6. METAMIZOL [Concomitant]
     Active Substance: METAMIZOLE SODIUM
     Dosage: 40 B.BD
  7. POLYETHYLENE GLYCOLS [Concomitant]
     Active Substance: POLYETHYLENE GLYCOLS
  8. SODIUM PICOSULFATE [Concomitant]
     Active Substance: SODIUM PICOSULFATE
     Dosage: 10 MG
  9. ENOXAPARIN [Concomitant]
     Active Substance: ENOXAPARIN
     Dosage: 0.4 ML
  10. FOLIC ACID [Concomitant]
     Active Substance: FOLIC ACID
     Dosage: 5 MG
  11. PREDNISOLONE [Concomitant]
     Active Substance: PREDNISOLONE
     Dosage: UNKNOWN
     Dates: start: 20210810
  12. PREDNISOLONE [Concomitant]
     Active Substance: PREDNISOLONE
     Dosage: 20 MG
     Dates: start: 20210902
  13. PREDNISOLONE [Concomitant]
     Active Substance: PREDNISOLONE
     Dosage: 12.5 +5
     Dates: start: 20210921
  14. ESOMEPRAZOLE [Concomitant]
     Active Substance: ESOMEPRAZOLE
     Dosage: 40 MG
  15. LEVOTHYROXINE [Concomitant]
     Active Substance: LEVOTHYROXINE
     Dosage: 150 MICROGRAM
  16. ONDANSETRON [Concomitant]
     Active Substance: ONDANSETRON
     Dosage: 8 MG B.BD
  17. NYSTATIN [Concomitant]
     Active Substance: NYSTATIN
  18. MIRTAZAPINE [Concomitant]
     Active Substance: MIRTAZAPINE
     Dosage: 30 MG
  19. PREGABALIN [Concomitant]
     Active Substance: PREGABALIN
     Dosage: 25 MG
  20. RUPATADINE [Concomitant]
     Active Substance: RUPATADINE
     Dosage: 10 MG
  21. DEXAMETHASONE [Concomitant]
     Active Substance: DEXAMETHASONE
  22. NUTRISON ENERGY MULTI FIBER [Concomitant]
     Dosage: 60 ML/H
  23. HYQVIA [Concomitant]
     Active Substance: HUMAN IMMUNOGLOBULIN G\HYALURONIDASE RECOMBINANT HUMAN
     Dosage: 10MG/ML V IA S.C. PUMP SYRINGE
     Route: 058
  24. DEXPANTHENOL [Concomitant]
     Active Substance: DEXPANTHENOL
  25. NOVORAPID [Concomitant]
     Active Substance: INSULIN ASPART
     Dosage: VIA INSULIN PUMP
  26. ZINC [Concomitant]
     Active Substance: ZINC
     Dosage: 30 MG

REACTIONS (4)
  - Psoriatic arthropathy [Unknown]
  - Anaphylactic reaction [Unknown]
  - Mucosal inflammation [Unknown]
  - Sinusitis [Unknown]

NARRATIVE: CASE EVENT DATE: 20210810
